FAERS Safety Report 7796235-0 (Version None)
Quarter: 2011Q4

REPORT INFORMATION
  Report Type: 
  Country: None (occurrence: None)
  Receive Date: 20111004
  Receipt Date: 20110930
  Transmission Date: 20120403
  Serious: Yes (Hospitalization, Other)
  Sender: FDA-Public Use
  Company Number: US-MERCK-1105USA01701

PATIENT
  Age: 62 Year
  Sex: Female
  Weight: 82 kg

DRUGS (23)
  1. CALCIUM (UNSPECIFIED) AND VITAMIN D (UNSPECIFIED) [Concomitant]
     Route: 065
     Dates: start: 19970101
  2. CHONDROITIN [Concomitant]
     Route: 048
  3. OS-CAL [Concomitant]
     Route: 065
  4. AMBIEN [Concomitant]
     Route: 065
  5. FOSAMAX PLUS D [Suspect]
     Indication: PROPHYLAXIS
     Route: 048
     Dates: start: 20071001, end: 20080101
  6. BONIVA [Suspect]
     Indication: PROPHYLAXIS
     Route: 065
     Dates: start: 20080101, end: 20080901
  7. FOSAMAX [Suspect]
     Route: 048
     Dates: start: 19970101
  8. FOSAMAX PLUS D [Suspect]
     Indication: OSTEOPENIA
     Route: 048
     Dates: start: 20071001, end: 20080101
  9. VITAMINS (UNSPECIFIED) [Concomitant]
     Route: 065
  10. FOSAMAX [Suspect]
     Route: 048
     Dates: start: 19970101
  11. VOLTAREN [Concomitant]
     Route: 048
  12. FOSAMAX [Suspect]
     Indication: OSTEOPENIA
     Route: 048
     Dates: start: 19970101, end: 20071001
  13. LOVENOX [Concomitant]
     Route: 065
  14. COLACE [Concomitant]
     Route: 065
  15. IRON (UNSPECIFIED) [Concomitant]
     Route: 065
  16. DIMETHYL SULFONE [Concomitant]
     Route: 048
  17. GLUCOSAMINE [Concomitant]
     Route: 048
  18. FOSAMAX [Suspect]
     Indication: PROPHYLAXIS
     Route: 048
     Dates: start: 19970101, end: 20071001
  19. CHONDROITIN SULFATE SODIUM AND GLUCOSAMINE SULFATE [Concomitant]
     Route: 065
  20. CRANBERRY [Concomitant]
     Route: 048
  21. ASPIRIN [Concomitant]
     Route: 048
  22. CENTRUM [Concomitant]
     Route: 048
  23. UBIDECARENONE [Concomitant]
     Route: 048

REACTIONS (21)
  - ARTHROPATHY [None]
  - JOINT INJURY [None]
  - TOOTH DISORDER [None]
  - FEMUR FRACTURE [None]
  - ARTHRITIS [None]
  - VITAMIN D DEFICIENCY [None]
  - FALL [None]
  - EXOSTOSIS [None]
  - HYPERTENSION [None]
  - BREAST CALCIFICATIONS [None]
  - BLOOD CHOLESTEROL INCREASED [None]
  - OSTEOARTHRITIS [None]
  - CYST [None]
  - PRESYNCOPE [None]
  - UTERINE LEIOMYOMA [None]
  - OSTEOPOROSIS [None]
  - VENTRICULAR TACHYCARDIA [None]
  - HYPOTHYROIDISM [None]
  - BURSITIS [None]
  - PAIN IN EXTREMITY [None]
  - DIVERTICULUM [None]
